FAERS Safety Report 8197394-0 (Version None)
Quarter: 2012Q1

REPORT INFORMATION
  Report Type: 
  Country: None (occurrence: None)
  Receive Date: 20120309
  Receipt Date: 20120306
  Transmission Date: 20120608
  Serious: Yes (Hospitalization)
  Sender: FDA-Public Use
  Company Number: DE-ROCHE-1042519

PATIENT
  Sex: Female
  Weight: 76 kg

DRUGS (8)
  1. PACLITAXEL [Suspect]
     Dates: start: 20120228
  2. HERCEPTIN [Suspect]
     Indication: BREAST CANCER
     Dosage: LAST DOSE PRIOR TO SAE: 14 FEB 2012
     Dates: start: 20120124, end: 20120221
  3. PACLITAXEL [Suspect]
     Indication: BREAST CANCER
     Dosage: LAST DOSE PRIOR TO SAE: 14 FEB 2012
     Dates: start: 20120124, end: 20120221
  4. LAPATINIB [Suspect]
     Dates: start: 20120228
  5. DOXORUBICIN HCL [Suspect]
     Indication: BREAST CANCER
     Dosage: LAST DOSE PRIOR TO SAE: 14 FEB 2012
     Dates: start: 20120124, end: 20120221
  6. LAPATINIB [Suspect]
     Indication: BREAST CANCER
     Dosage: LAST DOSE PRIOR TO SAE: 20 FEB 2012
     Route: 048
     Dates: start: 20120124, end: 20120221
  7. HERCEPTIN [Suspect]
     Dates: start: 20120228
  8. DOXORUBICIN HCL [Suspect]
     Dates: start: 20120228

REACTIONS (1)
  - GENERAL PHYSICAL HEALTH DETERIORATION [None]
